FAERS Safety Report 25607347 (Version 2)
Quarter: 2025Q3

REPORT INFORMATION
  Report Type: Spontaneous
  Country: EU (occurrence: EU)
  Receive Date: 20250725
  Receipt Date: 20250822
  Transmission Date: 20251021
  Serious: Yes (Hospitalization, Other)
  Sender: AMGEN
  Company Number: EU-AMGEN-FRASP2025142575

PATIENT
  Age: 16 Year
  Sex: Female

DRUGS (1)
  1. NPLATE [Suspect]
     Active Substance: ROMIPLOSTIM
     Indication: Immune thrombocytopenia
     Route: 065
     Dates: start: 202505

REACTIONS (11)
  - Cerebral venous thrombosis [Unknown]
  - Retinal artery spasm [Unknown]
  - Headache [Unknown]
  - Retinal disorder [Unknown]
  - Confusional state [Unknown]
  - Agitation [Unknown]
  - Mental disorder [Unknown]
  - Vomiting [Unknown]
  - Nervous system disorder [Unknown]
  - Maternal exposure during pregnancy [Unknown]
  - Hyperaesthesia [Unknown]

NARRATIVE: CASE EVENT DATE: 20250101
